FAERS Safety Report 4627210-2 (Version None)
Quarter: 2005Q1

REPORT INFORMATION
  Report Type: 
  Country: None (occurrence: None)
  Receive Date: 20050331
  Receipt Date: 20050321
  Transmission Date: 20050727
  Serious: Yes (Other)
  Sender: FDA-Public Use
  Company Number: HQWYE044917DEC04

PATIENT
  Age: 73 Year
  Sex: Female

DRUGS (3)
  1. PREMPRO [Suspect]
     Dosage: ORAL
     Route: 048
  2. PONDIMIN [Suspect]
     Indication: WEIGHT LOSS DIET
  3. REDUX [Suspect]
     Indication: WEIGHT LOSS DIET

REACTIONS (4)
  - BLOOD CHOLESTEROL INCREASED [None]
  - CARDIAC VALVE DISEASE [None]
  - INJURY [None]
  - VENTRICULAR EXTRASYSTOLES [None]
